FAERS Safety Report 21044192 (Version 4)
Quarter: 2022Q4

REPORT INFORMATION
  Report Type: Report from Study
  Country: US (occurrence: US)
  Receive Date: 20220705
  Receipt Date: 20221212
  Transmission Date: 20230113
  Serious: Yes (Hospitalization, Other)
  Sender: FDA-Public Use
  Company Number: US-XERIS PHARMACEUTICALS-2022XER00237

PATIENT
  Sex: Female

DRUGS (6)
  1. RECORLEV [Suspect]
     Active Substance: LEVOKETOCONAZOLE
     Indication: Pituitary-dependent Cushing^s syndrome
     Dosage: ONE TABLET (150 MG), 2X/DAY AS DIRECTED
     Route: 048
     Dates: start: 2022
  2. HUMALOG [Concomitant]
     Active Substance: INSULIN LISPRO
     Dosage: UNK
  3. LANTUS [Concomitant]
     Active Substance: INSULIN GLARGINE
     Dosage: UNK
  4. METFORMIN [Concomitant]
     Active Substance: METFORMIN HYDROCHLORIDE
     Dosage: UNK
  5. SYNTHROID [Concomitant]
     Active Substance: LEVOTHYROXINE SODIUM
     Dosage: UNK
  6. OZEMPIC [Concomitant]
     Active Substance: SEMAGLUTIDE

REACTIONS (9)
  - Plantar fasciitis [Not Recovered/Not Resolved]
  - Nausea [Recovering/Resolving]
  - Vomiting [Recovering/Resolving]
  - Fatigue [Unknown]
  - Arthralgia [Unknown]
  - Urinary tract infection [Not Recovered/Not Resolved]
  - Peripheral swelling [Recovered/Resolved]
  - Erythema [Recovered/Resolved]
  - Product dose omission issue [Not Recovered/Not Resolved]

NARRATIVE: CASE EVENT DATE: 20220101
